FAERS Safety Report 16313603 (Version 1)
Quarter: 2019Q2

REPORT INFORMATION
  Report Type: Spontaneous
  Country: US (occurrence: US)
  Receive Date: 20190515
  Receipt Date: 20190515
  Transmission Date: 20190711
  Serious: No
  Sender: FDA-Public Use
  Company Number: US-TAKEDA-2019TUS028561

PATIENT
  Age: 61 Year
  Sex: Female

DRUGS (2)
  1. DEXILANT [Suspect]
     Active Substance: DEXLANSOPRAZOLE
     Indication: GASTRITIS
     Dosage: UNK
     Route: 048
  2. DEXILANT [Suspect]
     Active Substance: DEXLANSOPRAZOLE
     Indication: DYSPEPSIA

REACTIONS (4)
  - Diarrhoea [Unknown]
  - Clostridium difficile infection [Unknown]
  - Dehydration [Unknown]
  - Gastric disorder [Unknown]

NARRATIVE: CASE EVENT DATE: 201804
